FAERS Safety Report 4553963-8 (Version None)
Quarter: 2005Q1

REPORT INFORMATION
  Report Type: 
  Country: None (occurrence: None)
  Receive Date: 20050118
  Receipt Date: 20050104
  Transmission Date: 20050727
  Serious: Yes (Other)
  Sender: FDA-Public Use
  Company Number: US-JNJFOC-20030800581

PATIENT
  Sex: Male
  Weight: 72.58 kg

DRUGS (5)
  1. REMICADE [Suspect]
     Route: 042
  2. REMICADE [Suspect]
     Indication: CROHN'S DISEASE
     Route: 042
  3. PENTASA [Concomitant]
     Route: 065
  4. ASACOL [Concomitant]
     Route: 065
  5. PREDNISONE [Concomitant]

REACTIONS (6)
  - CHILLS [None]
  - CONVULSION [None]
  - DYSPNOEA [None]
  - INFUSION RELATED REACTION [None]
  - RESPIRATORY DISORDER [None]
  - SKIN DISCOLOURATION [None]
